FAERS Safety Report 10137601 (Version 1)
Quarter: 2014Q2

REPORT INFORMATION
  Report Type: Spontaneous
  Country: US (occurrence: None)
  Receive Date: 20140428
  Receipt Date: 20140428
  Transmission Date: 20141212
  Serious: Yes (Hospitalization)
  Sender: FDA-Public Use
  Company Number: None

PATIENT
  Age: 61 Year
  Sex: Female
  Weight: 100.74 kg

DRUGS (2)
  1. CISPLATIN [Suspect]
  2. GEMCITABINE HYDROCHLORIDE [Suspect]

REACTIONS (3)
  - Cellulitis [None]
  - Vulvovaginal erythema [None]
  - Vulvovaginal swelling [None]
